FAERS Safety Report 9220777 (Version 1)
Quarter: 2013Q2

REPORT INFORMATION
  Report Type: Spontaneous
  Country: DE (occurrence: DE)
  Receive Date: 20130409
  Receipt Date: 20130409
  Transmission Date: 20140414
  Serious: Yes (Other)
  Sender: FDA-Public Use
  Company Number: DE-UCBSA-082493

PATIENT
  Sex: Female

DRUGS (6)
  1. NEUPRO [Suspect]
     Indication: RESTLESS LEGS SYNDROME
     Route: 062
  2. NEUPRO [Suspect]
     Indication: RESTLESS LEGS SYNDROME
     Route: 062
  3. NEUPRO [Suspect]
     Indication: RESTLESS LEGS SYNDROME
     Route: 062
  4. PRAMIPEXOL [Concomitant]
     Indication: RESTLESS LEGS SYNDROME
  5. SIFROL [Concomitant]
     Indication: RESTLESS LEGS SYNDROME
  6. RESTEX [Concomitant]
     Indication: RESTLESS LEGS SYNDROME

REACTIONS (3)
  - Staphylococcal infection [Unknown]
  - Joint destruction [Unknown]
  - Restless legs syndrome [Unknown]
